FAERS Safety Report 20709606 (Version 2)
Quarter: 2023Q1

REPORT INFORMATION
  Report Type: Spontaneous
  Country: US (occurrence: US)
  Receive Date: 20220414
  Receipt Date: 20230331
  Transmission Date: 20230418
  Serious: Yes (Other)
  Sender: FDA-Public Use
  Company Number: US-BAYER-2022A052060

PATIENT
  Sex: Female

DRUGS (1)
  1. KYLEENA [Suspect]
     Active Substance: LEVONORGESTREL
     Indication: Contraception
     Dosage: 17.5?G/DAY
     Route: 015
     Dates: start: 20220124, end: 20220408

REACTIONS (3)
  - Pregnancy with contraceptive device [Unknown]
  - Medical device monitoring error [Unknown]
  - Contraindicated device used [None]

NARRATIVE: CASE EVENT DATE: 20220101
